FAERS Safety Report 14634738 (Version 1)
Quarter: 2018Q1

REPORT INFORMATION
  Report Type: Spontaneous
  Country: US (occurrence: US)
  Receive Date: 20180314
  Receipt Date: 20180314
  Transmission Date: 20180509
  Serious: Yes (Hospitalization, Other)
  Sender: FDA-Public Use
  Company Number: US-PFIZER INC-2018105432

PATIENT
  Sex: Male

DRUGS (2)
  1. ADVIL [Suspect]
     Active Substance: IBUPROFEN
     Indication: ARTHRITIS
     Dosage: UNK
  2. ALEVE [Suspect]
     Active Substance: NAPROXEN SODIUM
     Indication: ARTHRITIS
     Dosage: UNK

REACTIONS (14)
  - Influenza [Unknown]
  - Haematochezia [Unknown]
  - Dyspnoea [Unknown]
  - Pain [Unknown]
  - Dehydration [Unknown]
  - Faeces discoloured [Unknown]
  - Gastric disorder [Unknown]
  - Malaise [Unknown]
  - Diarrhoea [Unknown]
  - Pyrexia [Unknown]
  - Dizziness [Unknown]
  - Night sweats [Unknown]
  - Anaemia [Unknown]
  - Cyst [Unknown]
